FAERS Safety Report 9493280 (Version 1)
Quarter: 2013Q3

REPORT INFORMATION
  Report Type: Spontaneous
  Country: US (occurrence: US)
  Receive Date: 20130902
  Receipt Date: 20130902
  Transmission Date: 20140515
  Serious: Yes (Hospitalization, Other)
  Sender: FDA-Public Use
  Company Number: US-ROCHE-1266713

PATIENT
  Sex: Male
  Weight: 93.52 kg

DRUGS (9)
  1. VALIUM [Suspect]
     Indication: SUICIDAL IDEATION
     Route: 065
     Dates: start: 2013
  2. VALIUM [Suspect]
     Route: 065
     Dates: start: 201307
  3. VALIUM [Suspect]
     Route: 065
     Dates: start: 2013
  4. LYRICA [Suspect]
     Indication: DIABETIC NEUROPATHY
     Route: 048
  5. LYRICA [Suspect]
     Route: 048
  6. DILANTIN [Suspect]
     Indication: CONVULSION
     Route: 065
     Dates: start: 2013
  7. DILANTIN [Suspect]
     Route: 065
  8. METFORMIN [Concomitant]
     Indication: TYPE 2 DIABETES MELLITUS
     Dosage: 500MG ONE TABLET IN MORNING AND TWO 500MG TABLETS IN EVENING
     Route: 048
  9. GLIPIZIDE [Concomitant]
     Dosage: 20MG DALLY (TWO 10MG TABLETS)
     Route: 048

REACTIONS (8)
  - Convulsion [Not Recovered/Not Resolved]
  - Suicidal ideation [Not Recovered/Not Resolved]
  - Visual impairment [Not Recovered/Not Resolved]
  - Dizziness [Not Recovered/Not Resolved]
  - Somnolence [Not Recovered/Not Resolved]
  - Drug ineffective [Unknown]
  - Abasia [Unknown]
  - Overdose [Unknown]
